FAERS Safety Report 25412737 (Version 1)
Quarter: 2025Q2

REPORT INFORMATION
  Report Type: Spontaneous
  Country: HU (occurrence: HU)
  Receive Date: 20250609
  Receipt Date: 20250609
  Transmission Date: 20250717
  Serious: Yes (Other)
  Sender: ROCHE
  Company Number: HU-ROCHE-10000302335

PATIENT

DRUGS (1)
  1. PHESGO [Suspect]
     Active Substance: HYALURONIDASE-ZZXF\PERTUZUMAB\TRASTUZUMAB
     Indication: Product used for unknown indication
     Route: 065

REACTIONS (7)
  - Gastrointestinal pain [Unknown]
  - Diarrhoea [Unknown]
  - Mucous stools [Unknown]
  - Abdominal distension [Unknown]
  - Flatulence [Unknown]
  - Constipation [Unknown]
  - Gastrointestinal inflammation [Unknown]
